FAERS Safety Report 23099665 (Version 1)
Quarter: 2023Q4

REPORT INFORMATION
  Report Type: Spontaneous
  Country: US (occurrence: None)
  Receive Date: 20231023
  Receipt Date: 20231023
  Transmission Date: 20240110
  Serious: Yes (unspecified)
  Sender: FDA-Public Use
  Company Number: None

PATIENT
  Age: 3 Year
  Sex: Male
  Weight: 15.7 kg

DRUGS (1)
  1. FLOVENT HFA [Suspect]
     Active Substance: FLUTICASONE PROPIONATE
     Dosage: FREQUENCY : TWICE A DAY;?
     Route: 055
     Dates: start: 20230905, end: 20231023

REACTIONS (4)
  - Mood swings [None]
  - Irritability [None]
  - Restless legs syndrome [None]
  - Urine output increased [None]

NARRATIVE: CASE EVENT DATE: 20230905
